FAERS Safety Report 11500277 (Version 3)
Quarter: 2016Q1

REPORT INFORMATION
  Report Type: Report from Study
  Country: JP (occurrence: JP)
  Receive Date: 20150914
  Receipt Date: 20160122
  Transmission Date: 20160525
  Serious: Yes (Death, Hospitalization, Other)
  Sender: FDA-Public Use
  Company Number: JP-ASTELLAS-2014JP015666

PATIENT
  Age: 69 Year
  Sex: Male

DRUGS (28)
  1. DECADRON [Concomitant]
     Active Substance: DEXAMETHASONE
     Indication: HORMONE-REFRACTORY PROSTATE CANCER
     Dosage: 0.5 MG, ONCE DAILY
     Route: 048
     Dates: start: 20140411, end: 20141009
  2. ESTRACYT                           /00327002/ [Concomitant]
     Active Substance: ESTRAMUSTINE PHOSPHATE SODIUM
     Indication: PROSTATE CANCER METASTATIC
     Dosage: 626.8 MG, ONCE DAILY
     Route: 048
     Dates: start: 20150313
  3. DEGARELIX [Suspect]
     Active Substance: DEGARELIX
     Indication: PROSTATE CANCER METASTATIC
  4. GASTER [Concomitant]
     Active Substance: FAMOTIDINE
     Indication: PROPHYLAXIS
     Route: 048
     Dates: start: 20140411
  5. DOCETAXEL. [Concomitant]
     Active Substance: DOCETAXEL
     Indication: HORMONE-REFRACTORY PROSTATE CANCER
     Route: 065
     Dates: start: 20140314, end: 20150508
  6. PREDNISOLONE. [Concomitant]
     Active Substance: PREDNISOLONE
     Indication: HORMONE-REFRACTORY PROSTATE CANCER
     Route: 048
     Dates: start: 20141010
  7. DEGARELIX [Suspect]
     Active Substance: DEGARELIX
     Indication: HORMONE-REFRACTORY PROSTATE CANCER
     Route: 058
     Dates: start: 20130726, end: 20130726
  8. ALDACTONE A [Concomitant]
     Active Substance: SPIRONOLACTONE
     Indication: OEDEMA
     Route: 048
     Dates: start: 20140704
  9. PROSEXOL [Suspect]
     Active Substance: ETHINYL ESTRADIOL
     Indication: HORMONE-REFRACTORY PROSTATE CANCER
     Route: 048
     Dates: start: 20140314, end: 20140702
  10. DECADRON [Concomitant]
     Active Substance: DEXAMETHASONE
     Indication: PROSTATE CANCER METASTATIC
  11. CASODEX [Concomitant]
     Active Substance: BICALUTAMIDE
     Indication: PROSTATE CANCER METASTATIC
  12. XTANDI [Suspect]
     Active Substance: ENZALUTAMIDE
     Indication: PROSTATE CANCER METASTATIC
     Route: 048
     Dates: start: 2014
  13. AZILVA [Concomitant]
     Active Substance: AZILSARTAN KAMEDOXOMIL
     Indication: HYPERTENSION
     Route: 048
     Dates: start: 20140320, end: 20150810
  14. RANMARK [Concomitant]
     Active Substance: DENOSUMAB
     Indication: PROSTATE CANCER METASTATIC
  15. JEVTANA [Concomitant]
     Active Substance: CABAZITAXEL
     Indication: PROSTATE CANCER METASTATIC
  16. GONAX [Suspect]
     Active Substance: DEGARELIX
     Indication: PROSTATE CANCER METASTATIC
  17. XTANDI [Suspect]
     Active Substance: ENZALUTAMIDE
     Indication: HORMONE-REFRACTORY PROSTATE CANCER
     Route: 048
     Dates: start: 20140704, end: 20140711
  18. ZYTIGA [Concomitant]
     Active Substance: ABIRATERONE ACETATE
     Indication: HORMONE-REFRACTORY PROSTATE CANCER
     Route: 048
     Dates: start: 20141010, end: 20141106
  19. ZYTIGA [Concomitant]
     Active Substance: ABIRATERONE ACETATE
     Indication: PROSTATE CANCER METASTATIC
  20. GONAX [Suspect]
     Active Substance: DEGARELIX
     Indication: HORMONE-REFRACTORY PROSTATE CANCER
     Route: 058
     Dates: start: 20130823, end: 20150703
  21. DOCETAXEL. [Concomitant]
     Active Substance: DOCETAXEL
     Indication: PROSTATE CANCER METASTATIC
  22. JEVTANA [Concomitant]
     Active Substance: CABAZITAXEL
     Indication: HORMONE-REFRACTORY PROSTATE CANCER
     Route: 065
     Dates: start: 20150609, end: 20150707
  23. PROSEXOL [Suspect]
     Active Substance: ETHINYL ESTRADIOL
     Indication: PROSTATE CANCER METASTATIC
     Route: 048
     Dates: start: 20141107, end: 20150312
  24. LASIX [Concomitant]
     Active Substance: FUROSEMIDE
     Indication: HYPERTENSION
     Route: 048
     Dates: start: 20140304
  25. CASODEX [Concomitant]
     Active Substance: BICALUTAMIDE
     Indication: HORMONE-REFRACTORY PROSTATE CANCER
     Route: 048
     Dates: start: 20130726, end: 20140129
  26. ESTRACYT                           /00327002/ [Concomitant]
     Active Substance: ESTRAMUSTINE PHOSPHATE SODIUM
     Indication: HORMONE-REFRACTORY PROSTATE CANCER
     Dosage: 626.8 MG, ONCE DAILY
     Route: 048
     Dates: start: 20140129, end: 20140314
  27. RANMARK [Concomitant]
     Active Substance: DENOSUMAB
     Indication: HORMONE-REFRACTORY PROSTATE CANCER
     Route: 065
     Dates: start: 20130823, end: 20140117
  28. PREDNISOLONE. [Concomitant]
     Active Substance: PREDNISOLONE
     Indication: PROSTATE CANCER METASTATIC

REACTIONS (5)
  - Oedema [Recovered/Resolved]
  - Prostate cancer [Fatal]
  - Palpitations [Recovered/Resolved]
  - Anaemia [Not Recovered/Not Resolved]
  - Platelet count decreased [Not Recovered/Not Resolved]

NARRATIVE: CASE EVENT DATE: 20140606
